FAERS Safety Report 21577148 (Version 2)
Quarter: 2022Q4

REPORT INFORMATION
  Report Type: Report from Study
  Country: US (occurrence: US)
  Receive Date: 20221110
  Receipt Date: 20221222
  Transmission Date: 20230112
  Serious: No
  Sender: FDA-Public Use
  Company Number: US-ABBVIE-4138026

PATIENT
  Age: 44 Year
  Sex: Female

DRUGS (2)
  1. SKYRIZI [Suspect]
     Active Substance: RISANKIZUMAB-RZAA
     Indication: Psoriasis
     Dosage: AT WEEK 0, WEEK 4, THEN EVERY 12 WEEKS THEREAFTER
     Route: 058
     Dates: start: 202209
  2. SKYRIZI [Suspect]
     Active Substance: RISANKIZUMAB-RZAA
     Route: 058
     Dates: start: 202209

REACTIONS (7)
  - Erythema [Unknown]
  - Burning sensation [Unknown]
  - Pruritus [Recovered/Resolved]
  - Pain [Unknown]
  - Off label use [Unknown]
  - Drug ineffective [Unknown]
  - Pruritus [Unknown]

NARRATIVE: CASE EVENT DATE: 20220901
